FAERS Safety Report 18373654 (Version 2)
Quarter: 2020Q4

REPORT INFORMATION
  Report Type: Spontaneous
  Country: US (occurrence: US)
  Receive Date: 20201012
  Receipt Date: 20201120
  Transmission Date: 20210114
  Serious: Yes (Other)
  Sender: FDA-Public Use
  Company Number: US-SEBELA IRELAND LIMITED-2020SEB00123

PATIENT
  Age: 65 Year
  Sex: Female
  Weight: 63.49 kg

DRUGS (4)
  1. LOTRONEX [Suspect]
     Active Substance: ALOSETRON HYDROCHLORIDE
     Indication: IRRITABLE BOWEL SYNDROME
     Dosage: 0.5 MG, 1X/DAY
     Route: 048
     Dates: start: 2016, end: 2017
  2. LOTRONEX [Suspect]
     Active Substance: ALOSETRON HYDROCHLORIDE
     Dosage: TOOK ^1 TIME OR 2 TIMES DAILY, WHICH SHE JUDGED ON THE SEVERITY OF HER IBS SYMPTOMS^
     Dates: start: 2018
  3. LOTRONEX [Suspect]
     Active Substance: ALOSETRON HYDROCHLORIDE
     Dosage: 1 MG, 1X/DAY
  4. MELOXICAM. [Concomitant]
     Active Substance: MELOXICAM

REACTIONS (16)
  - Neck pain [Unknown]
  - Malaise [Unknown]
  - Osteomyelitis [Unknown]
  - Swelling face [Unknown]
  - Diverticulitis [Unknown]
  - Fall [Recovered/Resolved]
  - Immunosuppression [Unknown]
  - Infection [Unknown]
  - Cranial nerve disorder [Unknown]
  - Post procedural drainage [Unknown]
  - Constipation [Unknown]
  - Expired product administered [Unknown]
  - Stress [Unknown]
  - Facial operation [Recovered/Resolved]
  - Irritable bowel syndrome [Unknown]
  - Weight decreased [Unknown]

NARRATIVE: CASE EVENT DATE: 201607
